FAERS Safety Report 4299367-7 (Version None)
Quarter: 2004Q1

REPORT INFORMATION
  Report Type: 
  Country: None (occurrence: None)
  Receive Date: 20040219
  Receipt Date: 20031124
  Transmission Date: 20041129
  Serious: No
  Sender: FDA-Public Use
  Company Number: US-GLAXOSMITHKLINE-A0441003A

PATIENT
  Age: 85 Year
  Sex: Male

DRUGS (4)
  1. AVODART [Suspect]
     Indication: BENIGN PROSTATIC HYPERPLASIA
     Dosage: .5MG PER DAY
     Route: 048
     Dates: start: 20030601
  2. TOPROL-XL [Concomitant]
  3. DIOVAN [Concomitant]
  4. LIPITOR [Concomitant]

REACTIONS (1)
  - TESTICULAR DISORDER [None]
